FAERS Safety Report 20127820 (Version 2)
Quarter: 2021Q4

REPORT INFORMATION
  Report Type: Spontaneous
  Country: JP (occurrence: JP)
  Receive Date: 20211129
  Receipt Date: 20211217
  Transmission Date: 20220303
  Serious: Yes (Other)
  Sender: FDA-Public Use
  Company Number: JP-PFIZER INC-202101601494

PATIENT
  Sex: Male

DRUGS (2)
  1. TOVIAZ [Suspect]
     Active Substance: FESOTERODINE FUMARATE
     Indication: Hypertonic bladder
     Dosage: 4 MG
     Route: 048
     Dates: start: 20211113, end: 20211117
  2. TAMSULOSIN HYDROCHLORIDE [Suspect]
     Active Substance: TAMSULOSIN HYDROCHLORIDE
     Dosage: UNK
     Route: 048
     Dates: start: 20211113

REACTIONS (7)
  - Arrhythmia [Recovered/Resolved]
  - Nausea [Unknown]
  - Tachycardia [Unknown]
  - Thirst [Unknown]
  - Constipation [Unknown]
  - Abdominal discomfort [Unknown]
  - Abnormal sensation in eye [Unknown]
